FAERS Safety Report 7328748-X (Version None)
Quarter: 2011Q1

REPORT INFORMATION
  Report Type: 
  Country: None (occurrence: None)
  Receive Date: 20110303
  Receipt Date: 20110218
  Transmission Date: 20110831
  Serious: Yes (Hospitalization)
  Sender: FDA-Public Use
  Company Number: PHHY2011FR13920

PATIENT
  Age: 64 Year
  Sex: Male

DRUGS (1)
  1. COTAREG [Suspect]
     Indication: ESSENTIAL HYPERTENSION
     Dosage: UNK
     Dates: start: 20110122, end: 20110208

REACTIONS (4)
  - INJURY [None]
  - HYPOTENSION [None]
  - FALL [None]
  - MALAISE [None]
